FAERS Safety Report 7984786-5 (Version None)
Quarter: 2011Q4

REPORT INFORMATION
  Report Type: 
  Country: None (occurrence: None)
  Receive Date: 20111216
  Receipt Date: 20111209
  Transmission Date: 20120403
  Serious: Yes (Death)
  Sender: FDA-Public Use
  Company Number: US-CELGENEUS-163-22393-10103023

PATIENT
  Sex: Male
  Weight: 83.536 kg

DRUGS (5)
  1. BENADRYL [Concomitant]
     Route: 065
  2. LORTAB [Concomitant]
     Indication: FLANK PAIN
     Route: 065
  3. AMBIEN [Concomitant]
     Dosage: 10 MILLIGRAM
     Route: 065
  4. ISTODAX [Suspect]
     Route: 041
     Dates: start: 20101001, end: 20110217
  5. MORPHINE [Concomitant]
     Indication: FLANK PAIN

REACTIONS (4)
  - PYREXIA [None]
  - RASH [None]
  - DISEASE PROGRESSION [None]
  - INFUSION SITE EXTRAVASATION [None]
